FAERS Safety Report 4394116-6 (Version None)
Quarter: 2004Q3

REPORT INFORMATION
  Report Type: 
  Country: None (occurrence: None)
  Receive Date: 20040712
  Receipt Date: 20040702
  Transmission Date: 20050211
  Serious: Yes (Hospitalization, Other)
  Sender: FDA-Public Use
  Company Number: FR-BRISTOL-MYERS SQUIBB COMPANY-12631057

PATIENT
  Age: 51 Year
  Sex: Female
  Weight: 63 kg

DRUGS (8)
  1. ZERIT [Suspect]
     Indication: HIV INFECTION
     Route: 048
     Dates: start: 20000201, end: 20030127
  2. VIDEX [Concomitant]
     Indication: HIV INFECTION
     Route: 048
     Dates: start: 20000201, end: 20030127
  3. SUSTIVA [Concomitant]
     Indication: HIV INFECTION
     Dosage: RESTARTED 25-MAR-2002, DISCONTINUED 27-JAN-2003, RESTARTED OCT-2003
     Route: 048
     Dates: start: 20000201
  4. PEGASYS [Concomitant]
     Indication: HEPATITIS C
     Dates: start: 20030613
  5. REBETOL [Concomitant]
     Indication: HEPATITIS C
     Dosage: DISCONTINUED AND RESTARTED ON 13-JUN-2003 AT 1000 MG DAILY
     Dates: start: 20020213
  6. INTERFERON ALFA [Concomitant]
     Indication: HEPATITIS C
     Dates: start: 20020213
  7. EPIVIR [Concomitant]
     Dates: start: 20020325, end: 20030127
  8. VIREAD [Concomitant]
     Dosage: STOPPED 27-JAN-2003 RESTARTED OCT-2003
     Dates: start: 20020325

REACTIONS (10)
  - ALANINE AMINOTRANSFERASE INCREASED [None]
  - ANOREXIA [None]
  - ASPARTATE AMINOTRANSFERASE INCREASED [None]
  - ASTHENIA [None]
  - BLOOD BICARBONATE DECREASED [None]
  - BLOOD BILIRUBIN INCREASED [None]
  - BLOOD CREATINE PHOSPHOKINASE INCREASED [None]
  - CYTOLYTIC HEPATITIS [None]
  - HEPATIC CIRRHOSIS [None]
  - MYALGIA [None]
